FAERS Safety Report 22372078 (Version 1)
Quarter: 2023Q2

REPORT INFORMATION
  Report Type: Spontaneous
  Country: AU (occurrence: AU)
  Receive Date: 20230526
  Receipt Date: 20230526
  Transmission Date: 20230722
  Serious: Yes (Other)
  Sender: FDA-Public Use
  Company Number: AU-Atnahs Limited-ATNAHS20230501605

PATIENT
  Age: 56 Year
  Sex: Male

DRUGS (17)
  1. DIAZEPAM [Suspect]
     Active Substance: DIAZEPAM
     Indication: Pain
     Dosage: MG
  2. ASPIRIN [Suspect]
     Active Substance: ASPIRIN
     Indication: Pain
  3. ATORVASTATIN [Suspect]
     Active Substance: ATORVASTATIN
     Indication: Pain
  4. BISOPROLOL FUMARATE [Suspect]
     Active Substance: BISOPROLOL FUMARATE
     Indication: Pain
  5. DAPAGLIFLOZIN [Suspect]
     Active Substance: DAPAGLIFLOZIN
     Indication: Pain
  6. DIGOXIN [Suspect]
     Active Substance: DIGOXIN
     Indication: Pain
  7. ENTRESTO [Suspect]
     Active Substance: SACUBITRIL\VALSARTAN
     Indication: Pain
  8. EPLERENONE [Suspect]
     Active Substance: EPLERENONE
     Indication: Pain
  9. FENTANYL [Suspect]
     Active Substance: FENTANYL
     Indication: Pain
  10. FLUOXETINE HYDROCHLORIDE [Suspect]
     Active Substance: FLUOXETINE HYDROCHLORIDE
     Indication: Pain
  11. FUROSEMIDE [Suspect]
     Active Substance: FUROSEMIDE
     Indication: Pain
  12. INSULIN NOS [Suspect]
     Active Substance: INSULIN NOS
     Indication: Pain
  13. OXYCODONE [Suspect]
     Active Substance: OXYCODONE
     Indication: Pain
  14. OZEMPIC [Suspect]
     Active Substance: SEMAGLUTIDE
     Indication: Pain
  15. WARFARIN SODIUM [Suspect]
     Active Substance: WARFARIN SODIUM
     Indication: Pain
  16. ZOPICLONE [Suspect]
     Active Substance: ZOPICLONE
     Indication: Pain
  17. ACETAMINOPHEN\CODEINE PHOSPHATE [Suspect]
     Active Substance: ACETAMINOPHEN\CODEINE PHOSPHATE
     Indication: Pain

REACTIONS (5)
  - Myocardial infarction [Unknown]
  - Disturbance in attention [Unknown]
  - Mobility decreased [Unknown]
  - Injury [Unknown]
  - Pain [Unknown]
